FAERS Safety Report 23159708 (Version 2)
Quarter: 2024Q1

REPORT INFORMATION
  Report Type: Spontaneous
  Country: AR (occurrence: AR)
  Receive Date: 20231108
  Receipt Date: 20240108
  Transmission Date: 20240409
  Serious: No
  Sender: FDA-Public Use
  Company Number: AR-PFIZER INC-PV202300172735

PATIENT
  Age: 9 Year
  Sex: Male

DRUGS (1)
  1. GENOTROPIN [Suspect]
     Active Substance: SOMATROPIN
     Indication: Short stature
     Dosage: 1 TO 1.4 MG (1.3 MG DAILY), 7 TIMES PER WEEK
     Dates: start: 20191019

REACTIONS (2)
  - Device mechanical issue [Unknown]
  - Poor quality device used [Unknown]
